FAERS Safety Report 8005626-4 (Version None)
Quarter: 2011Q4

REPORT INFORMATION
  Report Type: 
  Country: None (occurrence: None)
  Receive Date: 20111223
  Receipt Date: 20111221
  Transmission Date: 20120403
  Serious: Yes (Hospitalization, Other)
  Sender: FDA-Public Use
  Company Number: CA-BRISTOL-MYERS SQUIBB COMPANY-15417397

PATIENT
  Age: 68 Year
  Sex: Female

DRUGS (1)
  1. BELATACEPT [Suspect]
     Indication: RENAL TRANSPLANT
     Route: 042
     Dates: start: 20070311

REACTIONS (2)
  - RETINAL DETACHMENT [None]
  - CYTOMEGALOVIRUS CHORIORETINITIS [None]
